FAERS Safety Report 6143495-8 (Version None)
Quarter: 2009Q2

REPORT INFORMATION
  Report Type: 
  Country: None (occurrence: None)
  Receive Date: 20090403
  Receipt Date: 20090327
  Transmission Date: 20091009
  Serious: Yes (Hospitalization)
  Sender: FDA-Public Use
  Company Number: PHHY2009JP10008

PATIENT
  Age: 17 Year

DRUGS (5)
  1. CYCLOSPORINE [Suspect]
     Indication: ALLOGENIC BONE MARROW TRANSPLANTATION THERAPY
  2. METHOTREXATE [Concomitant]
     Indication: ALLOGENIC BONE MARROW TRANSPLANTATION THERAPY
  3. IRRADIATION [Concomitant]
  4. CYTARABINE [Concomitant]
  5. CYCLOPHOSPHAMIDE [Concomitant]

REACTIONS (5)
  - COUGH [None]
  - ORGANISING PNEUMONIA [None]
  - PYREXIA [None]
  - RESPIRATORY SYNCYTIAL VIRUS INFECTION [None]
  - STRIDOR [None]
